FAERS Safety Report 6289232-8 (Version None)
Quarter: 2009Q3

REPORT INFORMATION
  Report Type: 
  Country: None (occurrence: None)
  Receive Date: 20090729
  Receipt Date: 20090729
  Transmission Date: 20100115
  Serious: Yes (Life-Threatening, Hospitalization, Disabling, Other)
  Sender: FDA-Public Use
  Company Number: None

PATIENT
  Age: 35 Year
  Sex: Female
  Weight: 79.3795 kg

DRUGS (2)
  1. ABILIFY [Suspect]
     Indication: ANXIETY
     Dosage: 10 MG ONCE DAILY PO
     Route: 048
     Dates: start: 20090407, end: 20090725
  2. ABILIFY [Suspect]
     Indication: DEPRESSION
     Dosage: 10 MG ONCE DAILY PO
     Route: 048
     Dates: start: 20090407, end: 20090725

REACTIONS (7)
  - ARTHROPATHY [None]
  - ASTHENIA [None]
  - BACK DISORDER [None]
  - DIPLEGIA [None]
  - DYSPHAGIA [None]
  - MUSCULAR WEAKNESS [None]
  - PARALYSIS [None]
